FAERS Safety Report 8206492-4 (Version None)
Quarter: 2012Q1

REPORT INFORMATION
  Report Type: 
  Country: None (occurrence: None)
  Receive Date: 20120313
  Receipt Date: 20120308
  Transmission Date: 20120608
  Serious: Yes (Life-Threatening, Hospitalization)
  Sender: FDA-Public Use
  Company Number: ZA-ABBOTT-11P-143-0857831-00

PATIENT

DRUGS (12)
  1. OMEPRAZOLE [Concomitant]
     Indication: PRODUCT USED FOR UNKNOWN INDICATION
     Route: 048
  2. ESCITALOPRAM [Concomitant]
     Indication: DEPRESSION
     Dates: start: 20100318
  3. DEPO-PROVERA [Concomitant]
     Indication: CONTRACEPTION
     Dates: start: 20100730
  4. TRUVADA [Concomitant]
     Indication: HIV INFECTION
     Dates: start: 20100730
  5. LOPINAVIR/RITONAVIR [Suspect]
     Indication: HIV INFECTION
     Route: 048
     Dates: start: 20100730
  6. AUTRIN [Concomitant]
     Indication: PROPHYLAXIS
     Dosage: 1 TAB
     Dates: start: 20100401
  7. FYBOGEL [Concomitant]
     Indication: PRODUCT USED FOR UNKNOWN INDICATION
     Dosage: AT NIGHT
     Route: 048
  8. PURBAC DS [Concomitant]
     Indication: PROPHYLAXIS
     Dosage: 1 TAB
     Dates: start: 20081001
  9. DS-24 [Concomitant]
     Indication: VITAMIN SUPPLEMENTATION
     Dosage: 1 TAB
     Dates: start: 20081001
  10. SYNALONE [Concomitant]
     Indication: PRODUCT USED FOR UNKNOWN INDICATION
     Dosage: 2 TAB EVERY 8 HOURS
     Route: 048
  11. SYMBICORT [Concomitant]
     Indication: PRODUCT USED FOR UNKNOWN INDICATION
     Dosage: 1 PUFF BID
  12. ALBUTEROL [Concomitant]
     Indication: ASTHMA
     Dosage: 2 PUFF
     Dates: start: 19870101

REACTIONS (2)
  - ABDOMINAL PAIN [None]
  - ASTHMA [None]
